FAERS Safety Report 9304908 (Version 1)
Quarter: 2013Q2

REPORT INFORMATION
  Report Type: Spontaneous
  Country: NL (occurrence: NL)
  Receive Date: 20130523
  Receipt Date: 20130523
  Transmission Date: 20140414
  Serious: Yes (Other)
  Sender: FDA-Public Use
  Company Number: NL-MYLANLABS-2013S1010442

PATIENT
  Age: 86 Year
  Sex: Male

DRUGS (5)
  1. PERINDOPRIL [Suspect]
     Indication: CARDIAC DISORDER
     Dosage: DAILY
     Route: 048
     Dates: start: 20120706
  2. SIMVASTATINE [Suspect]
     Indication: PRODUCT USED FOR UNKNOWN INDICATION
     Dosage: DAILY
     Route: 048
     Dates: start: 200703, end: 20130110
  3. LUCRIN [Suspect]
     Indication: BREAST CANCER
     Dosage: 1XPER QUARTER
     Route: 065
     Dates: start: 20120404
  4. ACETYLSALICYLZUUR [Concomitant]
     Indication: PRODUCT USED FOR UNKNOWN INDICATION
     Dosage: START DATE BEFORE 2003
     Route: 048
  5. OMEPRAZOLE [Concomitant]
     Indication: PRODUCT USED FOR UNKNOWN INDICATION
     Route: 048
     Dates: start: 20130113

REACTIONS (2)
  - Tendon rupture [Not Recovered/Not Resolved]
  - Muscular weakness [Unknown]
